FAERS Safety Report 16344432 (Version 5)
Quarter: 2020Q1

REPORT INFORMATION
  Report Type: Spontaneous
  Country: IN (occurrence: IN)
  Receive Date: 20190522
  Receipt Date: 20200214
  Transmission Date: 20200409
  Serious: Yes (Other)
  Sender: FDA-Public Use
  Company Number: IN-PFIZER INC-2019116060

PATIENT
  Age: 62 Year
  Sex: Male

DRUGS (3)
  1. INLYTA [Suspect]
     Active Substance: AXITINIB
     Indication: METASTATIC RENAL CELL CARCINOMA
     Dosage: 5 MG, 2X/DAY
     Route: 048
     Dates: start: 20180508
  2. THYRONORM [Concomitant]
     Active Substance: LEVOTHYROXINE
     Dosage: 50 MG, UNK
  3. OLMEZEST [Concomitant]
     Dosage: 20 MG, UNK

REACTIONS (10)
  - Pain [Unknown]
  - Chronic kidney disease [Unknown]
  - Melaena [Recovered/Resolved]
  - Neoplasm progression [Unknown]
  - Haematochezia [Unknown]
  - Diarrhoea [Unknown]
  - Dyspnoea [Unknown]
  - Pain in extremity [Unknown]
  - Blood thyroid stimulating hormone increased [Unknown]
  - Nail dystrophy [Unknown]
